FAERS Safety Report 25503832 (Version 1)
Quarter: 2025Q3

REPORT INFORMATION
  Report Type: Report from Study
  Country: EU (occurrence: EU)
  Receive Date: 20250702
  Receipt Date: 20250702
  Transmission Date: 20251021
  Serious: Yes (Other)
  Sender: MYLAN
  Company Number: EU-MYLANLABS-2025M1055321

PATIENT
  Age: 57 Year
  Sex: Female

DRUGS (18)
  1. PREDNISONE [Suspect]
     Active Substance: PREDNISONE
     Indication: Follicular lymphoma stage IV
  2. PREDNISONE [Suspect]
     Active Substance: PREDNISONE
     Indication: B-cell lymphoma
  3. CYTARABINE [Suspect]
     Active Substance: CYTARABINE
     Indication: Follicular lymphoma stage IV
  4. CYTARABINE [Suspect]
     Active Substance: CYTARABINE
     Indication: B-cell lymphoma
  5. CISPLATIN [Suspect]
     Active Substance: CISPLATIN
     Indication: Follicular lymphoma stage IV
  6. CISPLATIN [Suspect]
     Active Substance: CISPLATIN
     Indication: B-cell lymphoma
  7. RITUXIMAB [Suspect]
     Active Substance: RITUXIMAB
     Indication: Follicular lymphoma stage IV
  8. RITUXIMAB [Suspect]
     Active Substance: RITUXIMAB
     Indication: B-cell lymphoma
  9. CYCLOPHOSPHAMIDE [Suspect]
     Active Substance: CYCLOPHOSPHAMIDE
     Indication: Follicular lymphoma stage IV
  10. CYCLOPHOSPHAMIDE [Suspect]
     Active Substance: CYCLOPHOSPHAMIDE
     Indication: B-cell lymphoma
  11. DOXORUBICIN [Suspect]
     Active Substance: DOXORUBICIN
     Indication: Follicular lymphoma stage IV
  12. DOXORUBICIN [Suspect]
     Active Substance: DOXORUBICIN
     Indication: B-cell lymphoma
  13. VINCRISTINE [Suspect]
     Active Substance: VINCRISTINE
     Indication: Follicular lymphoma stage IV
  14. VINCRISTINE [Suspect]
     Active Substance: VINCRISTINE
     Indication: B-cell lymphoma
  15. ETOPOSIDE [Suspect]
     Active Substance: ETOPOSIDE
     Indication: Follicular lymphoma stage IV
  16. ETOPOSIDE [Suspect]
     Active Substance: ETOPOSIDE
     Indication: B-cell lymphoma
  17. METHYLPREDNISOLONE [Suspect]
     Active Substance: METHYLPREDNISOLONE
     Indication: Follicular lymphoma stage IV
  18. METHYLPREDNISOLONE [Suspect]
     Active Substance: METHYLPREDNISOLONE
     Indication: B-cell lymphoma

REACTIONS (2)
  - Drug ineffective [Unknown]
  - Off label use [Unknown]
